FAERS Safety Report 23652792 (Version 1)
Quarter: 2024Q1

REPORT INFORMATION
  Report Type: Report from Study
  Country: US (occurrence: US)
  Receive Date: 20240320
  Receipt Date: 20240320
  Transmission Date: 20240409
  Serious: No
  Sender: FDA-Public Use
  Company Number: US-AGIOS-2403US03686

PATIENT
  Sex: Female

DRUGS (1)
  1. MITAPIVAT [Suspect]
     Active Substance: MITAPIVAT
     Indication: Hereditary haemolytic anaemia
     Dosage: 5 MILLIGRAM, BID
     Route: 048
     Dates: start: 20221120

REACTIONS (3)
  - Haemoglobin abnormal [Unknown]
  - Headache [Unknown]
  - Off label use [Unknown]
